FAERS Safety Report 7722336-9 (Version None)
Quarter: 2011Q3

REPORT INFORMATION
  Report Type: 
  Country: None (occurrence: None)
  Receive Date: 20110831
  Receipt Date: 20110823
  Transmission Date: 20111222
  Serious: Yes (Hospitalization)
  Sender: FDA-Public Use
  Company Number: US-US-EMD SERONO, INC.-7078565

PATIENT
  Sex: Female

DRUGS (1)
  1. REBIF [Suspect]
     Indication: MULTIPLE SCLEROSIS
     Route: 058
     Dates: start: 20030224

REACTIONS (5)
  - CONVULSION [None]
  - CONCUSSION [None]
  - DEPRESSED MOOD [None]
  - DYSPHEMIA [None]
  - DIZZINESS [None]
